FAERS Safety Report 18454047 (Version 1)
Quarter: 2020Q4

REPORT INFORMATION
  Report Type: Spontaneous
  Country: CH (occurrence: CH)
  Receive Date: 20201102
  Receipt Date: 20201102
  Transmission Date: 20210114
  Serious: Yes (Other)
  Sender: FDA-Public Use
  Company Number: NVSC2020CH291932

PATIENT
  Age: 81 Year
  Sex: Female

DRUGS (2)
  1. FULVESTRANT. [Suspect]
     Active Substance: FULVESTRANT
     Indication: BREAST CANCER
     Dosage: UNK
     Route: 065
     Dates: start: 202009
  2. PIQRAY [Suspect]
     Active Substance: ALPELISIB
     Indication: BREAST CANCER
     Dosage: UNK
     Route: 065
     Dates: start: 202009

REACTIONS (5)
  - Decreased appetite [Unknown]
  - Glossitis [Unknown]
  - Diabetes mellitus [Unknown]
  - Diarrhoea [Unknown]
  - Skin reaction [Unknown]
